FAERS Safety Report 20319279 (Version 3)
Quarter: 2022Q2

REPORT INFORMATION
  Report Type: Report from Study
  Country: US (occurrence: US)
  Receive Date: 20220110
  Receipt Date: 20220412
  Transmission Date: 20220720
  Serious: Yes (Hospitalization, Other)
  Sender: FDA-Public Use
  Company Number: US-HORIZON THERAPEUTICS-HZN-2021-004253

PATIENT

DRUGS (2)
  1. KRYSTEXXA [Suspect]
     Active Substance: PEGLOTICASE
     Indication: Gouty tophus
     Dosage: 8 MG, EVERY 2 WEEKS
     Route: 042
     Dates: start: 20210622
  2. KRYSTEXXA [Suspect]
     Active Substance: PEGLOTICASE
     Dosage: 8 MG, EVERY 2 WEEKS
     Route: 042
     Dates: start: 20210923

REACTIONS (3)
  - Myocardial infarction [Recovering/Resolving]
  - Coronary arterial stent insertion [Recovering/Resolving]
  - Arthralgia [Unknown]
